FAERS Safety Report 9210793 (Version 2)
Quarter: 2014Q1

REPORT INFORMATION
  Report Type: Spontaneous
  Country: US (occurrence: US)
  Receive Date: 20130404
  Receipt Date: 20140115
  Transmission Date: 20141002
  Serious: Yes (Hospitalization)
  Sender: FDA-Public Use
  Company Number: US-BAYER-2013-040249

PATIENT
  Age: 17 Year
  Sex: Female

DRUGS (9)
  1. YAZ [Suspect]
     Indication: ACNE
     Dosage: UNK
     Dates: start: 200906, end: 201007
  2. OCELLA [Suspect]
     Indication: ACNE
     Dosage: UNK
     Dates: start: 201007, end: 20101025
  3. FAMOTIDINE [Concomitant]
     Dosage: UNK
     Dates: start: 20080929
  4. PHENAZOPYRIDINE [Concomitant]
     Dosage: UNK
     Dates: start: 20080929
  5. FLUCONAZOLE [Concomitant]
     Dosage: UNK
     Dates: start: 20080929
  6. ZANTAC [Concomitant]
     Dosage: UNK
     Dates: start: 20081027
  7. NIASPAN [Concomitant]
     Dosage: UNK
     Dates: start: 20081027
  8. GAS-X [Concomitant]
  9. PEPCID [Concomitant]

REACTIONS (3)
  - Cholecystitis acute [None]
  - Injury [None]
  - Pain [None]
